FAERS Safety Report 25022800 (Version 1)
Quarter: 2025Q1

REPORT INFORMATION
  Report Type: Spontaneous
  Country: US (occurrence: US)
  Receive Date: 20250228
  Receipt Date: 20250228
  Transmission Date: 20250408
  Serious: No
  Sender: MYLAN
  Company Number: US-MYLANLABS-2025M1015155

PATIENT
  Sex: Female

DRUGS (116)
  1. LIPITOR [Suspect]
     Active Substance: ATORVASTATIN CALCIUM
     Indication: Product used for unknown indication
  2. LIPITOR [Suspect]
     Active Substance: ATORVASTATIN CALCIUM
     Route: 065
  3. LIPITOR [Suspect]
     Active Substance: ATORVASTATIN CALCIUM
     Route: 065
  4. LIPITOR [Suspect]
     Active Substance: ATORVASTATIN CALCIUM
  5. MAGNESIUM SULFATE [Concomitant]
     Active Substance: MAGNESIUM SULFATE
  6. MAGNESIUM SULFATE [Concomitant]
     Active Substance: MAGNESIUM SULFATE
     Route: 065
  7. MAGNESIUM SULFATE [Concomitant]
     Active Substance: MAGNESIUM SULFATE
     Route: 065
  8. MAGNESIUM SULFATE [Concomitant]
     Active Substance: MAGNESIUM SULFATE
  9. ALBUTEROL [Concomitant]
     Active Substance: ALBUTEROL
  10. ALBUTEROL [Concomitant]
     Active Substance: ALBUTEROL
     Route: 065
  11. ALBUTEROL [Concomitant]
     Active Substance: ALBUTEROL
     Route: 065
  12. ALBUTEROL [Concomitant]
     Active Substance: ALBUTEROL
  13. BACLOFEN [Concomitant]
     Active Substance: BACLOFEN
  14. BACLOFEN [Concomitant]
     Active Substance: BACLOFEN
     Route: 065
  15. BACLOFEN [Concomitant]
     Active Substance: BACLOFEN
     Route: 065
  16. BACLOFEN [Concomitant]
     Active Substance: BACLOFEN
  17. CYANOCOBALAMIN [Concomitant]
     Active Substance: CYANOCOBALAMIN
  18. CYANOCOBALAMIN [Concomitant]
     Active Substance: CYANOCOBALAMIN
     Route: 065
  19. CYANOCOBALAMIN [Concomitant]
     Active Substance: CYANOCOBALAMIN
     Route: 065
  20. CYANOCOBALAMIN [Concomitant]
     Active Substance: CYANOCOBALAMIN
  21. DEXTROAMPHETAMINE [Concomitant]
     Active Substance: DEXTROAMPHETAMINE
  22. DEXTROAMPHETAMINE [Concomitant]
     Active Substance: DEXTROAMPHETAMINE
     Route: 065
  23. DEXTROAMPHETAMINE [Concomitant]
     Active Substance: DEXTROAMPHETAMINE
     Route: 065
  24. DEXTROAMPHETAMINE [Concomitant]
     Active Substance: DEXTROAMPHETAMINE
  25. DULOXETINE [Concomitant]
     Active Substance: DULOXETINE
  26. DULOXETINE [Concomitant]
     Active Substance: DULOXETINE
     Route: 065
  27. DULOXETINE [Concomitant]
     Active Substance: DULOXETINE
     Route: 065
  28. DULOXETINE [Concomitant]
     Active Substance: DULOXETINE
  29. EPINEPHRINE [Concomitant]
     Active Substance: EPINEPHRINE
  30. EPINEPHRINE [Concomitant]
     Active Substance: EPINEPHRINE
     Route: 065
  31. EPINEPHRINE [Concomitant]
     Active Substance: EPINEPHRINE
     Route: 065
  32. EPINEPHRINE [Concomitant]
     Active Substance: EPINEPHRINE
  33. FAMOTIDINE [Concomitant]
     Active Substance: FAMOTIDINE
  34. FAMOTIDINE [Concomitant]
     Active Substance: FAMOTIDINE
     Route: 065
  35. FAMOTIDINE [Concomitant]
     Active Substance: FAMOTIDINE
     Route: 065
  36. FAMOTIDINE [Concomitant]
     Active Substance: FAMOTIDINE
  37. FUROSEMIDE [Concomitant]
     Active Substance: FUROSEMIDE
  38. FUROSEMIDE [Concomitant]
     Active Substance: FUROSEMIDE
     Route: 065
  39. FUROSEMIDE [Concomitant]
     Active Substance: FUROSEMIDE
     Route: 065
  40. FUROSEMIDE [Concomitant]
     Active Substance: FUROSEMIDE
  41. HYDROXYCHLOROQUINE [Concomitant]
     Active Substance: HYDROXYCHLOROQUINE
  42. HYDROXYCHLOROQUINE [Concomitant]
     Active Substance: HYDROXYCHLOROQUINE
     Route: 065
  43. HYDROXYCHLOROQUINE [Concomitant]
     Active Substance: HYDROXYCHLOROQUINE
     Route: 065
  44. HYDROXYCHLOROQUINE [Concomitant]
     Active Substance: HYDROXYCHLOROQUINE
  45. LEVETIRACETAM [Concomitant]
     Active Substance: LEVETIRACETAM
  46. LEVETIRACETAM [Concomitant]
     Active Substance: LEVETIRACETAM
     Route: 065
  47. LEVETIRACETAM [Concomitant]
     Active Substance: LEVETIRACETAM
     Route: 065
  48. LEVETIRACETAM [Concomitant]
     Active Substance: LEVETIRACETAM
  49. MAGNESIUM GLYCINATE [Concomitant]
     Active Substance: MAGNESIUM GLYCINATE
  50. MAGNESIUM GLYCINATE [Concomitant]
     Active Substance: MAGNESIUM GLYCINATE
     Route: 065
  51. MAGNESIUM GLYCINATE [Concomitant]
     Active Substance: MAGNESIUM GLYCINATE
     Route: 065
  52. MAGNESIUM GLYCINATE [Concomitant]
     Active Substance: MAGNESIUM GLYCINATE
  53. METOCLOPRAMIDE [Concomitant]
     Active Substance: METOCLOPRAMIDE
  54. METOCLOPRAMIDE [Concomitant]
     Active Substance: METOCLOPRAMIDE
     Route: 065
  55. METOCLOPRAMIDE [Concomitant]
     Active Substance: METOCLOPRAMIDE
     Route: 065
  56. METOCLOPRAMIDE [Concomitant]
     Active Substance: METOCLOPRAMIDE
  57. MONTELUKAST [Concomitant]
     Active Substance: MONTELUKAST
  58. MONTELUKAST [Concomitant]
     Active Substance: MONTELUKAST
     Route: 065
  59. MONTELUKAST [Concomitant]
     Active Substance: MONTELUKAST
     Route: 065
  60. MONTELUKAST [Concomitant]
     Active Substance: MONTELUKAST
  61. PROCHLORPERAZINE [Concomitant]
     Active Substance: PROCHLORPERAZINE
  62. PROCHLORPERAZINE [Concomitant]
     Active Substance: PROCHLORPERAZINE
     Route: 065
  63. PROCHLORPERAZINE [Concomitant]
     Active Substance: PROCHLORPERAZINE
     Route: 065
  64. PROCHLORPERAZINE [Concomitant]
     Active Substance: PROCHLORPERAZINE
  65. PREGABALIN [Concomitant]
     Active Substance: PREGABALIN
  66. PREGABALIN [Concomitant]
     Active Substance: PREGABALIN
     Route: 065
  67. PREGABALIN [Concomitant]
     Active Substance: PREGABALIN
     Route: 065
  68. PREGABALIN [Concomitant]
     Active Substance: PREGABALIN
  69. TOPIRAMATE [Concomitant]
     Active Substance: TOPIRAMATE
  70. TOPIRAMATE [Concomitant]
     Active Substance: TOPIRAMATE
     Route: 065
  71. TOPIRAMATE [Concomitant]
     Active Substance: TOPIRAMATE
     Route: 065
  72. TOPIRAMATE [Concomitant]
     Active Substance: TOPIRAMATE
  73. VITAMIN D3 [Concomitant]
     Active Substance: CHOLECALCIFEROL
  74. VITAMIN D3 [Concomitant]
     Active Substance: CHOLECALCIFEROL
     Route: 065
  75. VITAMIN D3 [Concomitant]
     Active Substance: CHOLECALCIFEROL
     Route: 065
  76. VITAMIN D3 [Concomitant]
     Active Substance: CHOLECALCIFEROL
  77. VITAMIN A [Concomitant]
     Active Substance: VITAMIN A
  78. VITAMIN A [Concomitant]
     Active Substance: VITAMIN A
     Route: 065
  79. VITAMIN A [Concomitant]
     Active Substance: VITAMIN A
     Route: 065
  80. VITAMIN A [Concomitant]
     Active Substance: VITAMIN A
  81. VITAMIN E [Concomitant]
     Active Substance: .ALPHA.-TOCOPHEROL
  82. VITAMIN E [Concomitant]
     Active Substance: .ALPHA.-TOCOPHEROL
     Route: 065
  83. VITAMIN E [Concomitant]
     Active Substance: .ALPHA.-TOCOPHEROL
     Route: 065
  84. VITAMIN E [Concomitant]
     Active Substance: .ALPHA.-TOCOPHEROL
  85. LEFLUNOMIDE [Concomitant]
     Active Substance: LEFLUNOMIDE
  86. LEFLUNOMIDE [Concomitant]
     Active Substance: LEFLUNOMIDE
     Route: 065
  87. LEFLUNOMIDE [Concomitant]
     Active Substance: LEFLUNOMIDE
     Route: 065
  88. LEFLUNOMIDE [Concomitant]
     Active Substance: LEFLUNOMIDE
  89. NEBIVOLOL [Concomitant]
     Active Substance: NEBIVOLOL
  90. NEBIVOLOL [Concomitant]
     Active Substance: NEBIVOLOL
     Route: 065
  91. NEBIVOLOL [Concomitant]
     Active Substance: NEBIVOLOL
     Route: 065
  92. NEBIVOLOL [Concomitant]
     Active Substance: NEBIVOLOL
  93. KEPPRA [Concomitant]
     Active Substance: LEVETIRACETAM
  94. KEPPRA [Concomitant]
     Active Substance: LEVETIRACETAM
     Route: 065
  95. KEPPRA [Concomitant]
     Active Substance: LEVETIRACETAM
     Route: 065
  96. KEPPRA [Concomitant]
     Active Substance: LEVETIRACETAM
  97. NEXIUM [Concomitant]
     Active Substance: ESOMEPRAZOLE MAGNESIUM
  98. NEXIUM [Concomitant]
     Active Substance: ESOMEPRAZOLE MAGNESIUM
     Route: 065
  99. NEXIUM [Concomitant]
     Active Substance: ESOMEPRAZOLE MAGNESIUM
     Route: 065
  100. NEXIUM [Concomitant]
     Active Substance: ESOMEPRAZOLE MAGNESIUM
  101. VALIUM [Concomitant]
     Active Substance: DIAZEPAM
  102. VALIUM [Concomitant]
     Active Substance: DIAZEPAM
     Route: 065
  103. VALIUM [Concomitant]
     Active Substance: DIAZEPAM
     Route: 065
  104. VALIUM [Concomitant]
     Active Substance: DIAZEPAM
  105. OCREVUS [Concomitant]
     Active Substance: OCRELIZUMAB
  106. OCREVUS [Concomitant]
     Active Substance: OCRELIZUMAB
     Route: 065
  107. OCREVUS [Concomitant]
     Active Substance: OCRELIZUMAB
     Route: 065
  108. OCREVUS [Concomitant]
     Active Substance: OCRELIZUMAB
  109. LYRICA [Concomitant]
     Active Substance: PREGABALIN
  110. LYRICA [Concomitant]
     Active Substance: PREGABALIN
     Route: 065
  111. LYRICA [Concomitant]
     Active Substance: PREGABALIN
     Route: 065
  112. LYRICA [Concomitant]
     Active Substance: PREGABALIN
  113. CELEBREX [Concomitant]
     Active Substance: CELECOXIB
  114. CELEBREX [Concomitant]
     Active Substance: CELECOXIB
     Route: 065
  115. CELEBREX [Concomitant]
     Active Substance: CELECOXIB
     Route: 065
  116. CELEBREX [Concomitant]
     Active Substance: CELECOXIB

REACTIONS (1)
  - Myositis [Unknown]
